FAERS Safety Report 5387149-4 (Version None)
Quarter: 2007Q3

REPORT INFORMATION
  Report Type: 
  Country: None (occurrence: None)
  Receive Date: 20070711
  Receipt Date: 20070629
  Transmission Date: 20080115
  Serious: Yes (Hospitalization)
  Sender: FDA-Public Use
  Company Number: 16701

PATIENT
  Age: 68 Year
  Sex: Male
  Weight: 63.5 kg

DRUGS (7)
  1. LEUCOVORIN CALCIUM [Suspect]
     Indication: COLORECTAL CANCER
     Dosage: 625 MG TOTAL
     Dates: start: 20060927, end: 20070103
  2. FLUOROURACIL [Suspect]
     Indication: COLORECTAL CANCER
     Dosage: 3.9 MG TOTAL
     Dates: start: 20060927, end: 20070103
  3. BEVACIZUMAB [Suspect]
     Indication: COLORECTAL CANCER
     Dosage: 3.9 MG
     Dates: start: 20060927, end: 20070103
  4. OXALIPLATIN [Suspect]
     Indication: COLORECTAL CANCER
     Dosage: 138 MG TOTAL
     Dates: start: 20060927, end: 20070103
  5. AVAPRO [Concomitant]
  6. HYTRIN [Concomitant]
  7. NEXIUM [Concomitant]

REACTIONS (2)
  - DIARRHOEA [None]
  - FEBRILE NEUTROPENIA [None]
